FAERS Safety Report 5359902-4 (Version None)
Quarter: 2007Q2

REPORT INFORMATION
  Report Type: 
  Country: None (occurrence: None)
  Receive Date: 20070531
  Receipt Date: 20070308
  Transmission Date: 20071010
  Serious: Yes (Other)
  Sender: FDA-Public Use
  Company Number: 011414

PATIENT
  Age: 40 Year
  Sex: Female

DRUGS (7)
  1. ENJUVIA [Suspect]
     Indication: HORMONE REPLACEMENT THERAPY
     Dosage: 1 TABLET, QD, ORAL
     Route: 048
     Dates: start: 20070307, end: 20070307
  2. LEXAPRO [Concomitant]
  3. SINGULAIR [Concomitant]
  4. FLEXERIL [Concomitant]
  5. AMBIEN [Concomitant]
  6. SYNTHROID [Concomitant]
  7. PRINZIDE [Concomitant]

REACTIONS (4)
  - ANAPHYLACTIC REACTION [None]
  - DYSPHAGIA [None]
  - DYSPNOEA [None]
  - TONSILLAR HYPERTROPHY [None]
